FAERS Safety Report 5399659-4 (Version None)
Quarter: 2007Q3

REPORT INFORMATION
  Report Type: 
  Country: None (occurrence: None)
  Receive Date: 20070727
  Receipt Date: 20070717
  Transmission Date: 20080115
  Serious: Yes (Other)
  Sender: FDA-Public Use
  Company Number: CH-PFIZER INC-2007055215

PATIENT
  Age: 53 Year
  Sex: Female
  Weight: 50 kg

DRUGS (5)
  1. LYRICA [Suspect]
     Indication: TRIGEMINAL NEURALGIA
     Route: 048
     Dates: start: 20070622, end: 20070628
  2. LYRICA [Suspect]
     Indication: NEURALGIA
  3. ARTHROTEC [Concomitant]
     Route: 048
  4. SIRDALUD [Concomitant]
     Route: 048
  5. CARVEDILOL [Concomitant]

REACTIONS (4)
  - BLISTER [None]
  - DRUG INEFFECTIVE [None]
  - HERPES SIMPLEX [None]
  - PAIN [None]
